FAERS Safety Report 4694963-7 (Version None)
Quarter: 2005Q2

REPORT INFORMATION
  Report Type: 
  Country: None (occurrence: None)
  Receive Date: 20050617
  Receipt Date: 20040510
  Transmission Date: 20051028
  Serious: Yes (Hospitalization)
  Sender: FDA-Public Use
  Company Number: US-2004-025177

PATIENT
  Sex: Female

DRUGS (4)
  1. FLUDARA [Suspect]
     Indication: CHRONIC LYMPHOCYTIC LEUKAEMIA
     Dosage: 3 CYCLES, INTRAVENOUS
     Route: 042
     Dates: end: 20031201
  2. RITUXAN [Suspect]
     Indication: CHRONIC LYMPHOCYTIC LEUKAEMIA
     Dosage: INTRAVENOUS
     Route: 042
     Dates: end: 20040301
  3. CYTOXAN [Concomitant]
  4. BETA BLOCKING AGENTS [Concomitant]

REACTIONS (1)
  - NEUTROPENIA [None]
